FAERS Safety Report 23869330 (Version 1)
Quarter: 2024Q2

REPORT INFORMATION
  Report Type: Spontaneous
  Country: NL (occurrence: NL)
  Receive Date: 20240517
  Receipt Date: 20240517
  Transmission Date: 20240716
  Serious: Yes (Other)
  Sender: FDA-Public Use
  Company Number: None

PATIENT
  Age: 34 Year
  Sex: Male
  Weight: 107 kg

DRUGS (1)
  1. DOXYCYCLINE [Suspect]
     Active Substance: DOXYCYCLINE
     Indication: Acne
     Dosage: 1 PIECE ONCE PER DAY?/ BRAND NAME NOT SPECIFIED
     Route: 065
     Dates: start: 20240405

REACTIONS (1)
  - Generalised tonic-clonic seizure [Recovered/Resolved]
